FAERS Safety Report 9351493 (Version 3)
Quarter: 2014Q2

REPORT INFORMATION
  Report Type: Report from Study
  Country: US (occurrence: US)
  Receive Date: 20130617
  Receipt Date: 20140421
  Transmission Date: 20141212
  Serious: Yes (Hospitalization)
  Sender: FDA-Public Use
  Company Number: US-ACTELION-A-US2013-84271

PATIENT
  Age: 55 Year
  Sex: Female

DRUGS (1)
  1. VELETRI [Suspect]
     Indication: PORTOPULMONARY HYPERTENSION
     Dosage: 13 NG/KG, PER MIN
     Route: 042
     Dates: start: 20130430

REACTIONS (9)
  - Dialysis [Unknown]
  - Medical device complication [Unknown]
  - Catheter placement [Unknown]
  - Drug dose omission [Unknown]
  - Headache [Unknown]
  - Catheter site pruritus [Unknown]
  - Flushing [Recovering/Resolving]
  - Asthenia [Recovering/Resolving]
  - Malaise [Recovering/Resolving]
